FAERS Safety Report 7995474-3 (Version None)
Quarter: 2011Q4

REPORT INFORMATION
  Report Type: 
  Country: None (occurrence: None)
  Receive Date: 20111220
  Receipt Date: 20111209
  Transmission Date: 20120403
  Serious: Yes (Hospitalization, Other)
  Sender: FDA-Public Use
  Company Number: US-BAYER-2011-044819

PATIENT
  Age: 20 Year
  Sex: Female
  Weight: 66 kg

DRUGS (5)
  1. YASMIN [Suspect]
     Indication: CONTRACEPTION
     Dosage: UNK
     Route: 048
     Dates: start: 20061224, end: 20080701
  2. YASMIN [Suspect]
     Indication: PREMENSTRUAL SYNDROME
  3. DROSPIRENONE AND ETHINYL ESTRADIOL [Suspect]
     Indication: PREMENSTRUAL SYNDROME
  4. LEVETIRACETAM [Concomitant]
  5. DROSPIRENONE AND ETHINYL ESTRADIOL [Suspect]
     Indication: CONTRACEPTION
     Dosage: UNK
     Dates: start: 20080701, end: 20090508

REACTIONS (10)
  - CEREBROVASCULAR ACCIDENT [None]
  - TONIC CLONIC MOVEMENTS [None]
  - TONGUE BITING [None]
  - JUGULAR VEIN THROMBOSIS [None]
  - PHOTOPSIA [None]
  - PAIN [None]
  - COORDINATION ABNORMAL [None]
  - MIGRAINE [None]
  - INJURY [None]
  - CONVULSION [None]
